FAERS Safety Report 17830424 (Version 1)
Quarter: 2020Q2

REPORT INFORMATION
  Report Type: Spontaneous
  Country: US (occurrence: US)
  Receive Date: 20200527
  Receipt Date: 20200527
  Transmission Date: 20200714
  Serious: No
  Sender: FDA-Public Use
  Company Number: US-PERRIGO-19US007866

PATIENT
  Sex: Female

DRUGS (1)
  1. MOMETASONE FUROATE. [Suspect]
     Active Substance: MOMETASONE FUROATE
     Indication: PRURITUS
     Dosage: UNKNOWN, UNKNOWN
     Route: 061
     Dates: start: 201906

REACTIONS (2)
  - Application site acne [Unknown]
  - Application site mass [Unknown]

NARRATIVE: CASE EVENT DATE: 201906
